FAERS Safety Report 4317145-7 (Version None)
Quarter: 2004Q1

REPORT INFORMATION
  Report Type: 
  Country: None (occurrence: None)
  Receive Date: 20040312
  Receipt Date: 20040224
  Transmission Date: 20041129
  Serious: Yes (Hospitalization, Other)
  Sender: FDA-Public Use
  Company Number: 2003JP007511

PATIENT
  Age: 16 Year
  Sex: Male
  Weight: 57.5 kg

DRUGS (9)
  1. PROTOPIC [Suspect]
     Indication: DERMATITIS ATOPIC
     Dosage: 0.1 %, BID, TOPICAL
     Route: 061
     Dates: start: 20030710, end: 20031001
  2. SEIJO-BOFU [Concomitant]
  3. BYAKKO-KA-NINJIN [Concomitant]
  4. ALLEGRA [Concomitant]
  5. HIRUDOID (HEAPRINOID) [Concomitant]
  6. PETROLATUNM (PETROLATUM) [Concomitant]
  7. ALMETA (ALCOMETASONE DIPROPIONATE) [Concomitant]
  8. DIFLUPREDNATE (DIFLUPRDENATE) [Concomitant]
  9. ACUATIM (NADIFLOXACIN) [Concomitant]

REACTIONS (3)
  - ANGIOSARCOMA METASTATIC [None]
  - ARTERIAL OCCLUSIVE DISEASE [None]
  - METASTASES TO LYMPH NODES [None]
